FAERS Safety Report 9555759 (Version 1)
Quarter: 2013Q3

REPORT INFORMATION
  Report Type: Spontaneous
  Country: US (occurrence: None)
  Receive Date: 20130816
  Receipt Date: 20130816
  Transmission Date: 20140515
  Serious: Yes (Other)
  Sender: FDA-Public Use
  Company Number: 2012/151

PATIENT
  Age: 19 Year
  Sex: Female

DRUGS (1)
  1. CEPHALEXIN [Suspect]
     Indication: OROPHARYNGEAL PAIN
     Route: 048
     Dates: start: 20120930, end: 20120930

REACTIONS (4)
  - Dry throat [None]
  - Odynophagia [None]
  - Hypersensitivity [None]
  - Somnolence [None]
